FAERS Safety Report 10494530 (Version 1)
Quarter: 2014Q4

REPORT INFORMATION
  Report Type: Spontaneous
  Country: US (occurrence: None)
  Receive Date: 20141002
  Receipt Date: 20141002
  Transmission Date: 20150528
  Serious: Yes (Hospitalization)
  Sender: FDA-Public Use
  Company Number: None

PATIENT
  Age: 56 Year
  Sex: Male
  Weight: 99.1 kg

DRUGS (19)
  1. AMBIEN [Concomitant]
     Active Substance: ZOLPIDEM TARTRATE
  2. TRUVADA [Concomitant]
     Active Substance: EMTRICITABINE\TENOFOVIR DISOPROXIL FUMARATE
  3. FISH OIL [Concomitant]
     Active Substance: FISH OIL
  4. SOFOSBUVIR [Suspect]
     Active Substance: SOFOSBUVIR
     Indication: HEPATITIS C
     Route: 048
     Dates: start: 20140520
  5. CARVEDILOL. [Concomitant]
     Active Substance: CARVEDILOL
  6. FENOFIBRATE. [Concomitant]
     Active Substance: FENOFIBRATE
  7. ASPIRIN. [Concomitant]
     Active Substance: ASPIRIN
  8. CELLCEPT [Concomitant]
     Active Substance: MYCOPHENOLATE MOFETIL\MYCOPHENOLATE MOFETIL HYDROCHLORIDE
  9. PANTOPRAZOLE [Concomitant]
     Active Substance: PANTOPRAZOLE SODIUM
  10. MULTIVITAMIN [Concomitant]
     Active Substance: VITAMINS
  11. GABAPENTIN. [Concomitant]
     Active Substance: GABAPENTIN
  12. VIRACEPT [Concomitant]
     Active Substance: NELFINAVIR MESYLATE
  13. BACTRIM [Concomitant]
     Active Substance: SULFAMETHOXAZOLE\TRIMETHOPRIM
  14. RIBAVIRIN. [Suspect]
     Active Substance: RIBAVIRIN
     Indication: HEPATITIS C
     Route: 048
     Dates: start: 20140520
  15. MAG OXIDE [Concomitant]
  16. SYNTHROID [Concomitant]
     Active Substance: LEVOTHYROXINE SODIUM
  17. PROGRAF [Concomitant]
     Active Substance: TACROLIMUS\TACROLIMUS ANHYDROUS
  18. OSCAL [Concomitant]
     Active Substance: CALCIUM CARBONATE
  19. VITAMIN D2 [Concomitant]
     Active Substance: ERGOCALCIFEROL

REACTIONS (8)
  - Anaemia [None]
  - Bronchitis chronic [None]
  - Dyspnoea [None]
  - Deep vein thrombosis [None]
  - Bone marrow failure [None]
  - Condition aggravated [None]
  - Dizziness [None]
  - Blood creatinine increased [None]

NARRATIVE: CASE EVENT DATE: 20140709
